FAERS Safety Report 23122890 (Version 1)
Quarter: 2023Q4

REPORT INFORMATION
  Report Type: Other
  Country: CA (occurrence: CA)
  Receive Date: 20231030
  Receipt Date: 20231030
  Transmission Date: 20240109
  Serious: Yes (Hospitalization)
  Sender: FDA-Public Use
  Company Number: CA-APOTEX-2023AP015819

PATIENT
  Age: 48 Year
  Sex: Female

DRUGS (2)
  1. ZOLEDRONIC ACID [Suspect]
     Active Substance: ZOLEDRONIC ACID
     Indication: Bone development abnormal
     Dosage: UNK
     Route: 065
  2. LANREOTIDE ACETATE [Suspect]
     Active Substance: LANREOTIDE ACETATE
     Indication: Neuroendocrine tumour
     Dosage: 120 MILLIGRAM
     Route: 058

REACTIONS (5)
  - Burning sensation [Recovered/Resolved]
  - Dry throat [Recovered/Resolved]
  - Palpitations [Recovered/Resolved]
  - Tongue dry [Recovered/Resolved]
  - Influenza like illness [Recovered/Resolved]
